FAERS Safety Report 15377066 (Version 1)
Quarter: 2018Q3

REPORT INFORMATION
  Report Type: Spontaneous
  Country: US (occurrence: US)
  Receive Date: 20180913
  Receipt Date: 20180913
  Transmission Date: 20181010
  Serious: Yes (Other)
  Sender: FDA-Public Use
  Company Number: US-RECORDATI RARE DISEASES INC.-US-R13005-17-00186

PATIENT
  Age: 13 Year
  Sex: Male

DRUGS (1)
  1. SUCCIMER [Suspect]
     Active Substance: SUCCIMER
     Indication: METAL POISONING
     Route: 065

REACTIONS (2)
  - Demyelinating polyneuropathy [Unknown]
  - Drug ineffective for unapproved indication [Unknown]
